FAERS Safety Report 19294804 (Version 1)
Quarter: 2021Q2

REPORT INFORMATION
  Report Type: Spontaneous
  Country: US (occurrence: US)
  Receive Date: 20210524
  Receipt Date: 20210524
  Transmission Date: 20210717
  Serious: Yes (Other)
  Sender: FDA-Public Use
  Company Number: US-SA-2021SA165999

PATIENT
  Age: 41 Year
  Sex: Female

DRUGS (2)
  1. ZANTAC [Suspect]
     Active Substance: RANITIDINE HYDROCHLORIDE
     Indication: DYSPEPSIA
     Dosage: 150 MG, QD
     Dates: start: 201301, end: 202005
  2. ZANTAC [Suspect]
     Active Substance: RANITIDINE HYDROCHLORIDE
     Indication: EROSIVE OESOPHAGITIS

REACTIONS (4)
  - Gallbladder cancer stage 0 [Unknown]
  - Breast cancer [Unknown]
  - Colorectal cancer [Unknown]
  - Skin cancer [Unknown]

NARRATIVE: CASE EVENT DATE: 20171001
